FAERS Safety Report 8595977-7 (Version None)
Quarter: 2012Q3

REPORT INFORMATION
  Report Type: 
  Country: None (occurrence: None)
  Receive Date: 20120815
  Receipt Date: 19940118
  Transmission Date: 20120928
  Serious: Yes (Other)
  Sender: FDA-Public Use
  Company Number: US-ROCHE-1100939

PATIENT
  Sex: Female

DRUGS (15)
  1. ACTIVASE [Suspect]
  2. DOPAMINE HCL [Concomitant]
     Dosage: INCRESED TO 20 MIC.
  3. ACTIVASE [Suspect]
     Indication: ACUTE MYOCARDIAL INFARCTION
     Route: 040
  4. ACTIVASE [Suspect]
     Route: 041
  5. DOPAMINE HCL [Concomitant]
     Dosage: 4 MIC/MG
  6. MORPHINE [Concomitant]
     Dosage: REPEATED
     Route: 042
  7. MORPHINE [Concomitant]
     Route: 042
  8. LIDOCAINE [Concomitant]
     Route: 042
  9. HEPARIN [Concomitant]
     Dosage: 5000 UNITS
     Route: 042
  10. LIDOCAINE [Concomitant]
     Route: 041
  11. MORPHINE [Concomitant]
     Route: 042
  12. MORPHINE [Concomitant]
     Route: 042
  13. MORPHINE [Concomitant]
     Route: 042
  14. DOPAMINE HCL [Concomitant]
     Dosage: INCREASED TO 10 MIC/MG
  15. DOPAMINE HCL [Concomitant]
     Dosage: 15 MIC

REACTIONS (3)
  - PAIN [None]
  - SOMNOLENCE [None]
  - HYPOTENSION [None]
